FAERS Safety Report 15643327 (Version 2)
Quarter: 2018Q4

REPORT INFORMATION
  Report Type: Spontaneous
  Country: JP (occurrence: JP)
  Receive Date: 20181121
  Receipt Date: 20181130
  Transmission Date: 20190205
  Serious: Yes (Hospitalization, Other)
  Sender: FDA-Public Use
  Company Number: JP-ELI_LILLY_AND_COMPANY-JP201811006085

PATIENT
  Age: 68 Year
  Sex: Male

DRUGS (3)
  1. RESTAMIN [DIPHENHYDRAMINE] [Concomitant]
     Dosage: 5 DF, OTHER
     Route: 048
     Dates: start: 20180918
  2. CYRAMZA [Suspect]
     Active Substance: RAMUCIRUMAB
     Indication: GASTRIC CANCER
     Dosage: 8 MG/KG, CYCLICAL
     Route: 042
     Dates: start: 20180918
  3. PACLITAXEL. [Suspect]
     Active Substance: PACLITAXEL
     Indication: GASTRIC CANCER
     Dosage: 80 MG/M2, CYCLICAL
     Route: 042
     Dates: start: 20180918

REACTIONS (4)
  - Renal disorder [Not Recovered/Not Resolved]
  - Anastomotic complication [Not Recovered/Not Resolved]
  - Hypoaesthesia [Unknown]
  - Dizziness [Unknown]

NARRATIVE: CASE EVENT DATE: 20181113
